FAERS Safety Report 4544949-8 (Version None)
Quarter: 2005Q1

REPORT INFORMATION
  Report Type: 
  Country: None (occurrence: None)
  Receive Date: 20050104
  Receipt Date: 20041220
  Transmission Date: 20050727
  Serious: Yes (Hospitalization)
  Sender: FDA-Public Use
  Company Number: 2004BI002056

PATIENT
  Age: 59 Year
  Sex: Female

DRUGS (1)
  1. AVONEX [Suspect]
     Indication: MULTIPLE SCLEROSIS
     Dosage: 30 UG; QM; IM
     Route: 030
     Dates: start: 20000101, end: 20020101

REACTIONS (5)
  - ABDOMINAL DISTENSION [None]
  - BENIGN GASTROINTESTINAL NEOPLASM [None]
  - BENIGN NEOPLASM OF BLADDER [None]
  - BENIGN NEOPLASM OF EYE [None]
  - BENIGN OVARIAN TUMOUR [None]
